FAERS Safety Report 19370783 (Version 1)
Quarter: 2021Q2

REPORT INFORMATION
  Report Type: Report from Study
  Country: CA (occurrence: CA)
  Receive Date: 20210604
  Receipt Date: 20210604
  Transmission Date: 20210717
  Serious: Yes (Other)
  Sender: FDA-Public Use
  Company Number: CA-BAUSCH-BL-2020-003034

PATIENT
  Age: 76 Year
  Sex: Male

DRUGS (4)
  1. SILIQ [Suspect]
     Active Substance: BRODALUMAB
     Route: 058
     Dates: start: 20210510, end: 20210525
  2. SILIQ [Suspect]
     Active Substance: BRODALUMAB
     Indication: PSORIASIS
     Dosage: 210MG/ 1.5 ML AT WEEK 0,1, 2
     Route: 058
     Dates: start: 20200120, end: 202002
  3. SILIQ [Suspect]
     Active Substance: BRODALUMAB
     Route: 058
     Dates: start: 20210510
  4. SILIQ [Suspect]
     Active Substance: BRODALUMAB
     Route: 058
     Dates: start: 202002

REACTIONS (10)
  - Peripheral swelling [Not Recovered/Not Resolved]
  - Fall [Unknown]
  - Angiopathy [Unknown]
  - Skin laceration [Not Recovered/Not Resolved]
  - Blood pressure increased [Not Recovered/Not Resolved]
  - Wound [Not Recovered/Not Resolved]
  - Skin weeping [Not Recovered/Not Resolved]
  - Skin infection [Not Recovered/Not Resolved]
  - Stress [Not Recovered/Not Resolved]
  - Contusion [Not Recovered/Not Resolved]

NARRATIVE: CASE EVENT DATE: 2020
